FAERS Safety Report 15059964 (Version 1)
Quarter: 2018Q2

REPORT INFORMATION
  Report Type: Spontaneous
  Country: US (occurrence: US)
  Receive Date: 20180605
  Receipt Date: 20180605
  Transmission Date: 20180711
  Serious: Yes (Hospitalization, Other)
  Sender: FDA-Public Use
  Company Number: None

PATIENT
  Age: 73 Year
  Sex: Male
  Weight: 97.52 kg

DRUGS (3)
  1. LORAZEPAM. [Suspect]
     Active Substance: LORAZEPAM
     Indication: ANXIETY
     Dates: start: 20180306, end: 20180328
  2. LORAZEPAM. [Suspect]
     Active Substance: LORAZEPAM
     Indication: ANXIETY
  3. LORAZEPAM. [Suspect]
     Active Substance: LORAZEPAM
     Indication: AKATHISIA
     Dates: start: 20180306, end: 20180328

REACTIONS (5)
  - Cognitive disorder [None]
  - Rash erythematous [None]
  - Delirium [None]
  - Mental status changes [None]
  - Rash [None]

NARRATIVE: CASE EVENT DATE: 20180328
